FAERS Safety Report 8793956 (Version 5)
Quarter: 2012Q4

REPORT INFORMATION
  Report Type: Report from Study
  Country: FR (occurrence: FR)
  Receive Date: 20120917
  Receipt Date: 20121130
  Transmission Date: 20130627
  Serious: Yes (Hospitalization)
  Sender: FDA-Public Use
  Company Number: FR-ACTELION-A-CH2012-70965

PATIENT
  Age: 46 Year
  Sex: Female

DRUGS (15)
  1. TRACLEER [Suspect]
     Indication: DIGITAL ULCER
     Dosage: 62.5 mg, bid
     Route: 048
     Dates: start: 20120810, end: 20120818
  2. TRACLEER [Suspect]
     Dosage: 62.5 UNK, UNK
     Route: 048
     Dates: start: 20120828, end: 2012
  3. TRACLEER [Suspect]
     Dosage: 125 UNK, UNK
     Route: 048
     Dates: start: 2012
  4. MONOTILDIEM [Concomitant]
     Dosage: 300 mg, od
  5. ASPEGIC [Concomitant]
     Dosage: 100 mg, UNK
  6. SPECIAFOLDINE [Concomitant]
     Dosage: UNK, od
  7. TARDYFERON [Concomitant]
     Dosage: UNK, od
  8. TRINORDIOL [Concomitant]
     Dosage: UNK, od
  9. COLCHICINE [Concomitant]
     Dosage: 1 mg, od
  10. CORTANCYL [Concomitant]
     Dosage: 5 mg, UNK
  11. INEXIUM [Concomitant]
     Dosage: 20 mg, UNK
  12. TAHOR [Concomitant]
     Dosage: 10 mg, UNK
  13. SKENAN [Concomitant]
     Dosage: 60 mg, bid
  14. ACTISKENAN [Concomitant]
     Dosage: 10 mg, prn
  15. DAFALGAN [Concomitant]
     Dosage: UNK

REACTIONS (5)
  - Extremity necrosis [Unknown]
  - Peripheral ischaemia [Unknown]
  - Pain in extremity [Unknown]
  - Vomiting [Recovered/Resolved]
  - Nausea [Recovered/Resolved]
